FAERS Safety Report 9503642 (Version 2)
Quarter: 2015Q2

REPORT INFORMATION
  Report Type: Spontaneous
  Country: US (occurrence: US)
  Receive Date: 20130906
  Receipt Date: 20150512
  Transmission Date: 20150821
  Serious: Yes (Hospitalization)
  Sender: FDA-Public Use
  Company Number: PHHY2013US095517

PATIENT
  Age: 50 Year
  Sex: Male

DRUGS (5)
  1. DESFLURANE. [Concomitant]
     Active Substance: DESFLURANE
     Indication: ANAESTHESIA
     Route: 065
  2. CEFAZOLIN [Suspect]
     Active Substance: CEFAZOLIN
     Indication: ANTIBIOTIC PROPHYLAXIS
     Dosage: 2 G, UNK
     Route: 042
  3. ROCURONIUM BROMIDE. [Suspect]
     Active Substance: ROCURONIUM BROMIDE
     Indication: MUSCLE RELAXANT THERAPY
     Dosage: 50 MG, UNK
     Route: 065
  4. PROPOFOL. [Suspect]
     Active Substance: PROPOFOL
     Indication: ANAESTHESIA
     Dosage: 200 MG, UNK
     Route: 041
  5. FENTANYL. [Concomitant]
     Active Substance: FENTANYL
     Indication: ANAESTHESIA
     Dosage: 200 UG, UNK
     Route: 042

REACTIONS (10)
  - Swelling [Recovering/Resolving]
  - Propofol infusion syndrome [Recovering/Resolving]
  - Tryptase increased [Unknown]
  - Circulatory collapse [Recovering/Resolving]
  - Metabolic acidosis [Recovering/Resolving]
  - Blood pressure decreased [Unknown]
  - Angioedema [Recovering/Resolving]
  - Generalised erythema [Recovering/Resolving]
  - Sinus tachycardia [Unknown]
  - Anaphylactic shock [Recovering/Resolving]
